FAERS Safety Report 8444581-X (Version None)
Quarter: 2012Q2

REPORT INFORMATION
  Report Type: 
  Country: None (occurrence: None)
  Receive Date: 20120611
  Receipt Date: 20120531
  Transmission Date: 20120825
  Serious: Yes (Hospitalization, Other)
  Sender: FDA-Public Use
  Company Number: 2012SP024672

PATIENT
  Age: 62 Year
  Sex: Female
  Weight: 64 kg

DRUGS (11)
  1. PEG-INTRON [Suspect]
     Indication: HEPATITIS C
     Dosage: 100;80 MCG/KG, QW, SC
     Route: 058
     Dates: start: 20120106, end: 20120222
  2. PEG-INTRON [Suspect]
     Indication: HEPATITIS C
     Dosage: 100;80 MCG/KG, QW, SC
     Route: 058
     Dates: start: 20120223, end: 20120229
  3. PEG-INTRON [Suspect]
     Indication: HEPATITIS C
     Dosage: 100;80 MCG/KG, QW, SC
     Route: 058
     Dates: start: 20120315
  4. PLAS-AMINO [Concomitant]
  5. TALION [Concomitant]
  6. TELAVIC (ANTIVIRALS NOS) [Suspect]
     Indication: HEPATITIS C
     Dosage: 1500;1000 MG, QD, PO
     Route: 048
     Dates: start: 20120221, end: 20120301
  7. TELAVIC (ANTIVIRALS NOS) [Suspect]
     Indication: HEPATITIS C
     Dosage: 1500;1000 MG, QD, PO
     Route: 048
     Dates: start: 20120106, end: 20120220
  8. REBETOL [Suspect]
     Indication: HEPATITIS C
     Dosage: 600;200;400 MG, QD, PO
     Route: 048
     Dates: start: 20120322
  9. REBETOL [Suspect]
     Indication: HEPATITIS C
     Dosage: 600;200;400 MG, QD, PO
     Route: 048
     Dates: start: 20120216, end: 20120301
  10. REBETOL [Suspect]
     Indication: HEPATITIS C
     Dosage: 600;200;400 MG, QD, PO
     Route: 048
     Dates: start: 20120106, end: 20120215
  11. ZOLPIDEM [Concomitant]

REACTIONS (6)
  - BRONCHITIS [None]
  - GENERAL PHYSICAL HEALTH DETERIORATION [None]
  - NAUSEA [None]
  - DECREASED APPETITE [None]
  - HAEMOGLOBIN DECREASED [None]
  - INSOMNIA [None]
